FAERS Safety Report 16180315 (Version 1)
Quarter: 2019Q2

REPORT INFORMATION
  Report Type: Spontaneous
  Country: US (occurrence: US)
  Receive Date: 20190410
  Receipt Date: 20190410
  Transmission Date: 20190711
  Serious: No
  Sender: FDA-Public Use
  Company Number: US-ASTRAZENECA-2019SE40809

PATIENT
  Sex: Female

DRUGS (4)
  1. ANASTROZOLE. [Suspect]
     Active Substance: ANASTROZOLE
     Route: 048
  2. FASLODEX [Suspect]
     Active Substance: FULVESTRANT
     Route: 030
  3. FASLODEX [Suspect]
     Active Substance: FULVESTRANT
     Route: 030
  4. ANASTROZOLE. [Suspect]
     Active Substance: ANASTROZOLE
     Route: 048

REACTIONS (1)
  - Hot flush [Unknown]
